FAERS Safety Report 6594316-0 (Version None)
Quarter: 2010Q1

REPORT INFORMATION
  Report Type: 
  Country: None (occurrence: None)
  Receive Date: 20100222
  Receipt Date: 20100210
  Transmission Date: 20100710
  Serious: Yes (Hospitalization)
  Sender: FDA-Public Use
  Company Number: FR-PFIZER INC-2010018087

PATIENT
  Age: 55 Year
  Sex: Female
  Weight: 72.3 kg

DRUGS (1)
  1. SUNITINIB MALATE [Suspect]
     Dosage: 50 MG, 1X/DAY
     Dates: start: 20100203

REACTIONS (2)
  - DYSPNOEA [None]
  - PLEURAL EFFUSION [None]
